FAERS Safety Report 9831179 (Version 1)
Quarter: 2014Q1

REPORT INFORMATION
  Report Type: Spontaneous
  Country: AU (occurrence: AU)
  Receive Date: 20140121
  Receipt Date: 20140121
  Transmission Date: 20141002
  Serious: Yes (Other)
  Sender: FDA-Public Use
  Company Number: AU-JNJFOC-20140107480

PATIENT
  Sex: Male

DRUGS (2)
  1. NICORETTE PATCH 1 [Suspect]
     Route: 062
  2. NICORETTE PATCH STEP 1 15MG [Suspect]
     Indication: PRODUCT USED FOR UNKNOWN INDICATION
     Route: 062

REACTIONS (2)
  - Palpitations [Unknown]
  - Dyspnoea [Unknown]
